FAERS Safety Report 8514618-8 (Version None)
Quarter: 2012Q3

REPORT INFORMATION
  Report Type: 
  Country: None (occurrence: None)
  Receive Date: 20120717
  Receipt Date: 20120712
  Transmission Date: 20120928
  Serious: Yes (Hospitalization, Other)
  Sender: FDA-Public Use
  Company Number: US-PURDUE-USA-2010-0043569

PATIENT
  Sex: Male
  Weight: 59.8 kg

DRUGS (10)
  1. STUDY DRUG [Suspect]
     Indication: COLORECTAL CANCER METASTATIC
     Dosage: 80 MG, BID
     Route: 048
     Dates: start: 20100226, end: 20100318
  2. GLIMEPIRIDE [Concomitant]
     Indication: PRODUCT USED FOR UNKNOWN INDICATION
     Dosage: UNK
     Dates: start: 20100205
  3. OXYCONTIN [Suspect]
     Dosage: 40 MG, BID
     Route: 048
     Dates: start: 20100317
  4. OXYCODONE HCL [Concomitant]
     Dosage: UNK
     Dates: start: 20100210
  5. NADOLOL [Concomitant]
     Indication: PRODUCT USED FOR UNKNOWN INDICATION
     Dosage: UNK
     Dates: start: 20090831
  6. OXYCONTIN [Suspect]
     Indication: PAIN
     Dosage: 20 MG, BID
     Route: 048
     Dates: start: 20100217
  7. ATIVAN [Concomitant]
     Indication: PRODUCT USED FOR UNKNOWN INDICATION
     Dosage: UNK
     Dates: start: 20090406
  8. BACLOFEN [Concomitant]
     Indication: PRODUCT USED FOR UNKNOWN INDICATION
     Dosage: UNK
     Dates: start: 20100317
  9. COLACE CAPSULES [Concomitant]
     Indication: PRODUCT USED FOR UNKNOWN INDICATION
     Dosage: UNK
     Dates: start: 20091123
  10. LISINOPRIL [Concomitant]
     Indication: HYPERTENSION
     Dosage: UNK
     Dates: start: 20090810

REACTIONS (7)
  - FLUID INTAKE REDUCED [None]
  - LETHARGY [None]
  - SOMNOLENCE [None]
  - DECREASED APPETITE [None]
  - DEHYDRATION [None]
  - CONFUSIONAL STATE [None]
  - METABOLIC ACIDOSIS [None]
